FAERS Safety Report 10783909 (Version 3)
Quarter: 2015Q1

REPORT INFORMATION
  Report Type: Report from Study
  Country: MX (occurrence: MX)
  Receive Date: 20150210
  Receipt Date: 20150224
  Transmission Date: 20150721
  Serious: Yes (Hospitalization)
  Sender: FDA-Public Use
  Company Number: PHHY2015MX015719

PATIENT
  Age: 49 Year
  Sex: Female

DRUGS (4)
  1. TASIGNA [Suspect]
     Active Substance: NILOTINIB
     Indication: CHRONIC MYELOID LEUKAEMIA
     Dosage: 400 MG, Q12H
     Route: 065
     Dates: start: 20120212
  2. PIROXICAM. [Suspect]
     Active Substance: PIROXICAM
     Indication: MUSCLE RELAXANT THERAPY
     Dosage: 1 UKN, QD
     Route: 048
     Dates: start: 20150109, end: 20150123
  3. INDOMETACIN [Suspect]
     Active Substance: INDOMETHACIN
     Indication: ARTHRALGIA
     Dosage: 25 MG, Q8H,
     Route: 048
     Dates: start: 20150109, end: 20150123
  4. TRAMADOL + PARACETAMOL [Suspect]
     Active Substance: ACETAMINOPHEN\TRAMADOL
     Indication: PAIN
     Dosage: 37.5/300 MG,, Q8H
     Route: 048
     Dates: start: 20150109, end: 20150123

REACTIONS (4)
  - Upper gastrointestinal haemorrhage [Recovered/Resolved]
  - Platelet count decreased [Recovered/Resolved]
  - Oesophageal rupture [Recovered/Resolved]
  - Haemoglobin decreased [Recovering/Resolving]

NARRATIVE: CASE EVENT DATE: 20150123
